FAERS Safety Report 25979839 (Version 1)
Quarter: 2025Q4

REPORT INFORMATION
  Report Type: Spontaneous
  Country: US (occurrence: US)
  Receive Date: 20251030
  Receipt Date: 20251030
  Transmission Date: 20260118
  Serious: No
  Sender: PFIZER
  Company Number: US-PFIZER INC-202500213903

PATIENT
  Age: 26 Year
  Sex: Male

DRUGS (2)
  1. LITFULO [Suspect]
     Active Substance: RITLECITINIB TOSYLATE
     Indication: Alopecia areata
     Dosage: 50 MG, 1X/DAY
     Route: 048
  2. TOFACITINIB [Suspect]
     Active Substance: TOFACITINIB
     Indication: Alopecia areata
     Dosage: UNK, 2X/DAY

REACTIONS (3)
  - Drug ineffective [Unknown]
  - Off label use [Unknown]
  - Product use issue [Unknown]
